FAERS Safety Report 5029669-8 (Version None)
Quarter: 2006Q2

REPORT INFORMATION
  Report Type: 
  Country: None (occurrence: None)
  Receive Date: 20060620
  Receipt Date: 20060608
  Transmission Date: 20061013
  Serious: Yes (Death, Life-Threatening)
  Sender: FDA-Public Use
  Company Number: FR-JNJFOC-20060506277

PATIENT
  Age: 65 Year
  Sex: Female
  Weight: 52 kg

DRUGS (4)
  1. MOTILIUM [Suspect]
     Indication: DRUG USE FOR UNKNOWN INDICATION
     Route: 048
  2. TOPALGIC [Interacting]
     Indication: DRUG USE FOR UNKNOWN INDICATION
     Route: 048
  3. SUTENT [Interacting]
     Indication: GASTRIC NEOPLASM
     Route: 048
  4. PROZAC [Concomitant]
     Route: 065

REACTIONS (7)
  - CARDIAC FAILURE [None]
  - DRUG INTERACTION [None]
  - HEPATIC ENCEPHALOPATHY [None]
  - HEPATIC FAILURE [None]
  - RENAL FAILURE [None]
  - SEPTIC SHOCK [None]
  - THROMBOCYTOPENIA [None]
